FAERS Safety Report 6470111-8 (Version None)
Quarter: 2009Q4

REPORT INFORMATION
  Report Type: 
  Country: None (occurrence: None)
  Receive Date: 20091203
  Receipt Date: 20080109
  Transmission Date: 20100525
  Serious: Yes (Death, Hospitalization)
  Sender: FDA-Public Use
  Company Number: JP-ELI_LILLY_AND_COMPANY-JP200711006456

PATIENT
  Sex: Male
  Weight: 54 kg

DRUGS (18)
  1. PEMETREXED [Suspect]
     Indication: PLEURAL MESOTHELIOMA MALIGNANT
     Dosage: 500 MG/M2, OTHER
     Route: 042
     Dates: start: 20070927, end: 20071112
  2. CISPLATIN [Suspect]
     Indication: PLEURAL MESOTHELIOMA MALIGNANT
     Dosage: 60 MG/M2, OTHER
     Route: 042
     Dates: start: 20070927, end: 20071112
  3. PANVITAN [Concomitant]
     Dosage: 1 G, DAILY (1/D)
     Route: 048
     Dates: start: 20070919, end: 20071122
  4. HYDROXOCOBALAMIN ACETATE [Concomitant]
     Dosage: 1 MG, DAILY (1/D)
     Route: 030
     Dates: start: 20070919, end: 20070919
  5. HYDROXOCOBALAMIN ACETATE [Concomitant]
     Dosage: 1 MG, DAILY (1/D)
     Route: 030
     Dates: start: 20071121, end: 20071121
  6. DECADRON [Concomitant]
     Indication: PROPHYLAXIS
     Dosage: 20 MG, DAILY (1/D)
     Route: 042
     Dates: start: 20070927, end: 20071112
  7. KYTRIL [Concomitant]
     Indication: PROPHYLAXIS OF NAUSEA AND VOMITING
     Dosage: 3 MG, DAILY (1/D)
     Route: 042
     Dates: start: 20070927, end: 20071119
  8. OXYCONTIN [Concomitant]
     Indication: CANCER PAIN
     Dosage: 20 MG, DAILY (1/D)
     Route: 048
     Dates: end: 20071001
  9. OXYCONTIN [Concomitant]
     Dosage: 30 MG, DAILY (1/D)
     Route: 048
     Dates: start: 20071002, end: 20071022
  10. OXYCONTIN [Concomitant]
     Dosage: 20 MG, DAILY (1/D)
     Route: 048
     Dates: start: 20071023, end: 20071122
  11. MAGMITT [Concomitant]
     Indication: PROPHYLAXIS
     Dosage: 990 MG, DAILY (1/D)
     Route: 048
     Dates: end: 20071122
  12. PURSENNID [Concomitant]
     Indication: PROPHYLAXIS
     Dosage: 24 MG, DAILY (1/D)
     Route: 048
     Dates: end: 20071122
  13. NOVAMIN [Concomitant]
     Indication: PROPHYLAXIS
     Dosage: 5 MG, DAILY (1/D)
     Route: 048
     Dates: end: 20071122
  14. ACETAMINOPHEN [Concomitant]
     Indication: CANCER PAIN
     Dosage: 1200 MG, DAILY (1/D)
     Route: 048
     Dates: end: 20071122
  15. GASTER D /JPN/ [Concomitant]
     Indication: PROPHYLAXIS
     Dosage: 40 MG, DAILY (1/D)
     Route: 048
     Dates: start: 20071029, end: 20071122
  16. TETRAMIDE [Concomitant]
     Indication: PROPHYLAXIS
     Dosage: 10 MG, DAILY (1/D)
     Route: 048
     Dates: start: 20071019, end: 20071122
  17. GABAPENTIN [Concomitant]
     Indication: PROPHYLAXIS
     Dosage: 200 MG, DAILY (1/D)
     Route: 048
     Dates: start: 20071102, end: 20071122
  18. FIRSTCIN [Concomitant]
     Indication: PYREXIA
     Dosage: 2 G, DAILY (1/D)
     Route: 065
     Dates: start: 20071115, end: 20071118

REACTIONS (2)
  - PLATELET COUNT DECREASED [None]
  - PNEUMONIA [None]
